FAERS Safety Report 18795044 (Version 1)
Quarter: 2021Q1

REPORT INFORMATION
  Report Type: Spontaneous
  Country: US (occurrence: US)
  Receive Date: 20210127
  Receipt Date: 20210127
  Transmission Date: 20210419
  Serious: Yes (Death)
  Sender: FDA-Public Use
  Company Number: None

PATIENT
  Age: 80 Year
  Sex: Male

DRUGS (16)
  1. FLUIDROCORT [Concomitant]
  2. NYSTOP [Concomitant]
     Active Substance: NYSTATIN
  3. OXYBUTYIN [Concomitant]
  4. FUROSEMIDE. [Concomitant]
     Active Substance: FUROSEMIDE
  5. FEROUS SUL [Concomitant]
  6. MONTELUKAST [Concomitant]
     Active Substance: MONTELUKAST SODIUM
  7. SODIUM [Concomitant]
     Active Substance: SODIUM
  8. FINASTERIDE. [Concomitant]
     Active Substance: FINASTERIDE
  9. IPRATROPIUM [Concomitant]
     Active Substance: IPRATROPIUM
  10. LEVOTHYROXIN [Concomitant]
     Active Substance: LEVOTHYROXINE
  11. TOBRAMYCIN. [Suspect]
     Active Substance: TOBRAMYCIN
     Indication: RESPIRATION ABNORMAL
     Dosage: ?          OTHER ROUTE:INHALE?
     Route: 055
     Dates: start: 20200304, end: 20210125
  12. FLUTICASONE. [Concomitant]
     Active Substance: FLUTICASONE
  13. MIDODRINE [Concomitant]
     Active Substance: MIDODRINE
  14. OMEPRAZOLE. [Concomitant]
     Active Substance: OMEPRAZOLE
  15. SPIRNOLACT [Concomitant]
  16. A?HYDROCORT [Concomitant]
     Active Substance: HYDROCORTISONE SODIUM SUCCINATE

REACTIONS (1)
  - Death [None]

NARRATIVE: CASE EVENT DATE: 20210125
